FAERS Safety Report 7032766-9 (Version None)
Quarter: 2010Q4

REPORT INFORMATION
  Report Type: 
  Country: None (occurrence: None)
  Receive Date: 20101007
  Receipt Date: 20100928
  Transmission Date: 20110411
  Serious: No
  Sender: FDA-Public Use
  Company Number: US-PFIZER INC-2010123117

PATIENT
  Sex: Female
  Weight: 79.365 kg

DRUGS (12)
  1. TOVIAZ [Suspect]
     Indication: HYPERTONIC BLADDER
     Dosage: 4 MG, 1X/DAY
     Dates: start: 20100816
  2. TOPROL-XL [Concomitant]
     Indication: MITRAL VALVE PROLAPSE
     Dosage: UNK
  3. TOPAMAX [Concomitant]
     Indication: MIGRAINE
     Dosage: UNK
  4. MINOCYCLINE [Concomitant]
     Indication: ACNE
     Dosage: UNK
  5. SEROQUEL [Concomitant]
     Indication: MAJOR DEPRESSION
     Dosage: UNK
  6. KLONOPIN [Concomitant]
     Indication: MAJOR DEPRESSION
     Dosage: UNK
  7. PRISTIQ [Concomitant]
     Indication: MAJOR DEPRESSION
     Dosage: UNK
  8. DEXLANSOPRAZOLE [Concomitant]
     Indication: GASTROOESOPHAGEAL REFLUX DISEASE
     Dosage: UNK
  9. SYNTHROID [Concomitant]
     Indication: HYPOTHYROIDISM
     Dosage: UNK
  10. ROPINIROLE [Concomitant]
     Indication: RESTLESS LEGS SYNDROME
     Dosage: UNK
  11. YASMIN [Concomitant]
     Indication: CONTRACEPTION
     Dosage: UNK
  12. YASMIN [Concomitant]
     Indication: ACNE

REACTIONS (2)
  - DIARRHOEA [None]
  - DRUG INEFFECTIVE [None]
